FAERS Safety Report 6611484-2 (Version None)
Quarter: 2010Q1

REPORT INFORMATION
  Report Type: 
  Country: None (occurrence: None)
  Receive Date: 20100301
  Receipt Date: 20100301
  Transmission Date: 20100710
  Serious: Yes (Hospitalization)
  Sender: FDA-Public Use
  Company Number: None

PATIENT
  Age: 68 Year
  Sex: Male
  Weight: 94.1 kg

DRUGS (2)
  1. SORAFENIB 400 MG DAILY PO [Suspect]
     Indication: PANCREATIC CARCINOMA
     Dosage: SORAFENIB 400 MG DAILY PO
     Dates: start: 20091109
  2. ERLOTINIB [Suspect]
     Indication: PANCREATIC CARCINOMA
     Dosage: ERLOTINIB 150 MG DAILY PO
     Route: 048
     Dates: start: 20091109

REACTIONS (2)
  - OBSTRUCTION GASTRIC [None]
  - POSTOPERATIVE ILEUS [None]
